FAERS Safety Report 7358944-7 (Version None)
Quarter: 2011Q1

REPORT INFORMATION
  Report Type: 
  Country: None (occurrence: None)
  Receive Date: 20110317
  Receipt Date: 20110311
  Transmission Date: 20110831
  Serious: Yes (Hospitalization)
  Sender: FDA-Public Use
  Company Number: US-ELI_LILLY_AND_COMPANY-US201103002045

PATIENT
  Sex: Male
  Weight: 71.21 kg

DRUGS (16)
  1. PROCHLORPERAZINE MALEATE [Concomitant]
     Dosage: 10 MG, AS NEEDED
  2. HYDREA [Concomitant]
     Indication: POLYCYTHAEMIA VERA
     Dosage: 500 MG, OTHER
     Route: 048
  3. VITAMIN B-12 [Concomitant]
     Dosage: 1000 UG, DAILY (1/D)
     Route: 048
  4. CETUXIMAB [Suspect]
     Indication: NON-SMALL CELL LUNG CANCER
     Dosage: 756 MG, UNK
     Dates: start: 20110228
  5. OMEPRAZOLE [Concomitant]
     Dosage: 20 MG, DAILY (1/D)
     Route: 048
  6. ZOCOR [Concomitant]
     Dosage: 40 MG, DAILY (1/D)
     Route: 048
  7. OXYGEN [Concomitant]
     Dosage: 4 LITER, UNK
  8. OXYGEN [Concomitant]
     Dosage: 15 LITER, UNK
     Dates: start: 20110302
  9. MEGACE [Concomitant]
     Dosage: 800 MG, DAILY (1/D)
     Route: 048
  10. CISPLATIN [Suspect]
     Indication: NON-SMALL CELL LUNG CANCER
     Dosage: 142 MG, UNK
     Dates: start: 20110228
  11. ASPIRIN [Concomitant]
     Dosage: 325 MG, DAILY (1/D)
     Route: 048
  12. DEXAMETHASONE [Concomitant]
     Dosage: 4 MG, 2/D
     Route: 048
  13. PEMETREXED [Suspect]
     Indication: NON-SMALL CELL LUNG CANCER
     Dosage: 945 MG, UNK
     Dates: start: 20110228
  14. ENULOSE [Concomitant]
     Dosage: 30 ML, UNK
  15. FOLIC ACID [Concomitant]
     Dosage: 1 MG, DAILY (1/D)
     Route: 048
  16. MIRTAZAPINE [Concomitant]
     Dosage: 7.5 MG, OTHER
     Route: 048

REACTIONS (2)
  - TROPONIN INCREASED [None]
  - DYSPNOEA [None]
